FAERS Safety Report 21935694 (Version 3)
Quarter: 2023Q1

REPORT INFORMATION
  Report Type: Spontaneous
  Country: IE (occurrence: IE)
  Receive Date: 20230201
  Receipt Date: 20230303
  Transmission Date: 20230417
  Serious: Yes (Death)
  Sender: FDA-Public Use
  Company Number: IE-002147023-NVSC2023IE021170

PATIENT
  Age: 65 Year
  Sex: Female

DRUGS (1)
  1. TEGRETOL [Suspect]
     Active Substance: CARBAMAZEPINE
     Indication: Multiple sclerosis
     Dosage: UNK, (PACK SIZE 300 ML)
     Route: 065
     Dates: start: 2013

REACTIONS (2)
  - Multiple sclerosis [Fatal]
  - Product use in unapproved indication [Unknown]
